FAERS Safety Report 15052926 (Version 1)
Quarter: 2018Q2

REPORT INFORMATION
  Report Type: Report from Study
  Country: None (occurrence: CH)
  Receive Date: 20180622
  Receipt Date: 20180622
  Transmission Date: 20180711
  Serious: Yes (Death)
  Sender: FDA-Public Use
  Company Number: CH-ABBVIE-18K-151-2388821-00

PATIENT
  Sex: Male

DRUGS (3)
  1. DUODOPA [Suspect]
     Active Substance: CARBIDOPA\LEVODOPA
     Dosage: MORNING DOSE 10ML?CONTINUOUS RATE 3.4ML/H?EXTRA DOSE 3ML?16H THERAPY
     Route: 050
     Dates: start: 20170105
  2. DUODOPA [Suspect]
     Active Substance: CARBIDOPA\LEVODOPA
     Dosage: MORNING DOSE 10ML?CONTINUOUS RATE 3.2ML/H?EXTRA DOSE 3ML?16H THERAPY
     Route: 050
     Dates: start: 20160521, end: 20170105
  3. DUODOPA [Suspect]
     Active Substance: CARBIDOPA\LEVODOPA
     Indication: PARKINSON^S DISEASE
     Route: 050
     Dates: start: 20131024, end: 20160521

REACTIONS (3)
  - Cerebrovascular accident [Fatal]
  - Wrong technique in product usage process [Unknown]
  - Device occlusion [Unknown]

NARRATIVE: CASE EVENT DATE: 2018
